FAERS Safety Report 24265463 (Version 5)
Quarter: 2025Q3

REPORT INFORMATION
  Report Type: Report from Study
  Country: US (occurrence: US)
  Receive Date: 20240829
  Receipt Date: 20250904
  Transmission Date: 20251021
  Serious: No
  Sender: SUNOVION
  Company Number: US-SUMITOMO PHARMA SWITZERLAND GMBH-2024SPA000792

PATIENT
  Age: 77 Year
  Sex: Male

DRUGS (4)
  1. ORGOVYX [Suspect]
     Active Substance: RELUGOLIX
     Indication: Prostate cancer
     Route: 048
  2. ORGOVYX [Suspect]
     Active Substance: RELUGOLIX
     Dosage: 120 MG, QD
     Route: 048
     Dates: start: 20230310
  3. IMBRUVICA [Concomitant]
     Active Substance: IBRUTINIB
  4. BICALUTAMIDE [Concomitant]
     Active Substance: BICALUTAMIDE

REACTIONS (9)
  - Balance disorder [Unknown]
  - Tooth extraction [Unknown]
  - Muscular weakness [Unknown]
  - White blood cell disorder [Unknown]
  - Sinusitis [Unknown]
  - Asthenia [Unknown]
  - Fatigue [Unknown]
  - Pain in extremity [Unknown]
  - Product dose omission issue [Unknown]
